FAERS Safety Report 15970146 (Version 1)
Quarter: 2019Q1

REPORT INFORMATION
  Report Type: Spontaneous
  Country: FR (occurrence: FR)
  Receive Date: 20190215
  Receipt Date: 20190215
  Transmission Date: 20190418
  Serious: Yes (Hospitalization)
  Sender: FDA-Public Use
  Company Number: FR-009507513-1902FRA005190

PATIENT
  Age: 80 Year
  Sex: Male
  Weight: 84 kg

DRUGS (16)
  1. BACTRIM [Concomitant]
     Active Substance: SULFAMETHOXAZOLE\TRIMETHOPRIM
     Indication: INFECTION
     Dosage: 3 DOSAGE FORM, 1 WEEK(QW)
     Route: 048
  2. ACETAMINOPHEN. [Concomitant]
     Active Substance: ACETAMINOPHEN
     Indication: PAIN
     Dosage: 4 GRAM, DAILY(QD)
     Route: 048
  3. CLOBEX [Concomitant]
     Active Substance: CLOBETASOL PROPIONATE
     Indication: PSORIASIS
     Dosage: 1 DOSAGE FORM, DAILY(QD)
     Route: 061
  4. ALLOPURINOL. [Concomitant]
     Active Substance: ALLOPURINOL
     Indication: LITHIASIS
     Dosage: 100 MILLIGRAM, DAILY(QD)
     Route: 048
  5. TARDYFERON [Concomitant]
     Active Substance: FERROUS SULFATE
     Indication: ANAEMIA
     Dosage: 1 DOSAGE FORM, DAILY(QD)
     Route: 048
  6. SEEBRI BREEZHALER [Interacting]
     Active Substance: GLYCOPYRROLATE
     Indication: CHRONIC OBSTRUCTIVE PULMONARY DISEASE
     Dosage: 1 DOSAGE FORM, DAILY(QD)
     Route: 055
  7. LEDERFOLINE [Concomitant]
     Active Substance: LEUCOVORIN CALCIUM
     Indication: PROPHYLAXIS
     Dosage: 1 DOSAGE FORM, 1 WEEK(QW)
     Route: 048
  8. CYMBALTA [Interacting]
     Active Substance: DULOXETINE HYDROCHLORIDE
     Indication: ANXIETY
     Dosage: 1 DOSAGE FORM, DAILY(QD)
     Route: 048
  9. VENTOLINE (ALBUTEROL) [Concomitant]
     Active Substance: ALBUTEROL
     Indication: ASTHMA
     Dosage: UNK
     Route: 055
  10. SERETIDE [Concomitant]
     Active Substance: FLUTICASONE PROPIONATE\SALMETEROL XINAFOATE
     Indication: ASTHMA
     Dosage: 2 DOSAGE FORM, DAILY(QD)
     Route: 055
  11. SERESTA [Interacting]
     Active Substance: OXAZEPAM
     Indication: ANXIETY
     Dosage: 20 MILLIGRAM, DAILY(QD)
     Route: 048
  12. UVEDOSE [Concomitant]
     Active Substance: CHOLECALCIFEROL
     Indication: VITAMIN D DEFICIENCY
     Dosage: INCONNUE
     Route: 048
  13. MONTELUKAST SODIUM. [Suspect]
     Active Substance: MONTELUKAST SODIUM
     Indication: ASTHMA
     Dosage: 10 MILLIGRAM, DAILY(QD)
     Route: 048
     Dates: end: 20181024
  14. ACTISKENAN [Interacting]
     Active Substance: MORPHINE SULFATE
     Indication: PAIN
     Dosage: 3 DOSAGE FORM
     Route: 048
     Dates: end: 20181016
  15. ACUPAN [Interacting]
     Active Substance: NEFOPAM HYDROCHLORIDE
     Indication: PAIN
     Dosage: 60 MILLIGRAM, DAILY(QD)
     Route: 048
     Dates: end: 20181015
  16. SKENAN [Interacting]
     Active Substance: MORPHINE SULFATE
     Indication: PAIN
     Dosage: 50 MILLIGRAM, DAILY(QD)
     Route: 048
     Dates: end: 20181016

REACTIONS (5)
  - Disorientation [Recovered/Resolved]
  - Abnormal behaviour [Recovered/Resolved]
  - Drug interaction [Recovered/Resolved]
  - Fall [Recovered/Resolved]
  - Consciousness fluctuating [Recovered/Resolved]

NARRATIVE: CASE EVENT DATE: 201810
